FAERS Safety Report 19877750 (Version 5)
Quarter: 2023Q4

REPORT INFORMATION
  Report Type: Report from Study
  Country: MX (occurrence: MX)
  Receive Date: 20210923
  Receipt Date: 20231204
  Transmission Date: 20240110
  Serious: Yes (Life-Threatening, Other)
  Sender: FDA-Public Use
  Company Number: NVSC2021MX215827

PATIENT
  Age: 31 Year
  Sex: Male
  Weight: 75.5 kg

DRUGS (11)
  1. COSENTYX [Suspect]
     Active Substance: SECUKINUMAB
     Indication: Ankylosing spondylitis
     Dosage: 150 MG, QMO
     Route: 058
     Dates: start: 201903
  2. COSENTYX [Suspect]
     Active Substance: SECUKINUMAB
     Dosage: 150 MG, QMO
     Route: 058
  3. SULFASALAZINE [Suspect]
     Active Substance: SULFASALAZINE
     Indication: Ill-defined disorder
     Dosage: 6 G, QD
     Route: 048
     Dates: start: 2018
  4. SULFASALAZINE [Suspect]
     Active Substance: SULFASALAZINE
     Indication: Ankylosing spondylitis
     Dosage: 2 DOSAGE FORM, TID (500 MG)
     Route: 048
     Dates: start: 201903
  5. SULFASALAZINE [Suspect]
     Active Substance: SULFASALAZINE
     Indication: Pain
     Dosage: 500 MG (4 OF 500 MG), QD
     Route: 048
     Dates: start: 2021
  6. INDOMETHACIN [Concomitant]
     Active Substance: INDOMETHACIN
     Indication: Pain
     Dosage: 1 DOSAGE FORM, PRN
     Route: 048
     Dates: start: 2018
  7. INDOMETHACIN [Concomitant]
     Active Substance: INDOMETHACIN
     Dosage: 1 DOSAGE FORM, PRN (24 MG)
     Route: 048
  8. INDOMETHACIN [Concomitant]
     Active Substance: INDOMETHACIN
     Dosage: 1 DOSAGE FORM, QD (24 MG)
     Route: 048
     Dates: start: 202309
  9. DEFLAZACORT [Concomitant]
     Active Substance: DEFLAZACORT
     Indication: Pain
     Dosage: 1 DOSAGE FORM OF 6 MG, QD
     Route: 048
     Dates: start: 202309
  10. DEFLAZACORT [Concomitant]
     Active Substance: DEFLAZACORT
     Indication: Arthritis
  11. PANTOPRAZOLE [Concomitant]
     Active Substance: PANTOPRAZOLE
     Indication: Abdominal discomfort
     Dosage: 2 DOSAGE FORM, QD (40 MG)
     Route: 048
     Dates: start: 202308

REACTIONS (11)
  - Condition aggravated [Not Recovered/Not Resolved]
  - Spinal disorder [Unknown]
  - Spinal column injury [Unknown]
  - Pain [Unknown]
  - Back pain [Recovering/Resolving]
  - Mobility decreased [Recovering/Resolving]
  - Sacroiliitis [Recovering/Resolving]
  - Inflammation [Recovering/Resolving]
  - Joint noise [Recovering/Resolving]
  - Discomfort [Recovering/Resolving]
  - Abdominal discomfort [Recovering/Resolving]

NARRATIVE: CASE EVENT DATE: 20210918
